FAERS Safety Report 5329156-3 (Version None)
Quarter: 2007Q2

REPORT INFORMATION
  Report Type: 
  Country: None (occurrence: None)
  Receive Date: 20070518
  Receipt Date: 20070507
  Transmission Date: 20071010
  Serious: Yes (Other)
  Sender: FDA-Public Use
  Company Number: US-PFIZER INC-2007015509

PATIENT
  Sex: Female
  Weight: 67.6 kg

DRUGS (4)
  1. CHANTIX [Suspect]
     Indication: SMOKING CESSATION THERAPY
     Route: 048
  2. LEXAPRO [Interacting]
     Indication: DEPRESSION
     Route: 048
  3. NEFAZODONE HCL [Interacting]
     Indication: DEPRESSION
     Route: 048
     Dates: start: 20070124, end: 20070126
  4. GABAPENTIN [Concomitant]
     Route: 048

REACTIONS (10)
  - AGGRESSION [None]
  - ANXIETY [None]
  - COGNITIVE DISORDER [None]
  - DEPRESSION [None]
  - DISORIENTATION [None]
  - DIZZINESS [None]
  - DRUG INTERACTION [None]
  - FEELING ABNORMAL [None]
  - IMPATIENCE [None]
  - MENTAL IMPAIRMENT [None]
